FAERS Safety Report 24810990 (Version 1)
Quarter: 2025Q1

REPORT INFORMATION
  Report Type: Report from Study
  Country: US (occurrence: US)
  Receive Date: 20250106
  Receipt Date: 20250106
  Transmission Date: 20250408
  Serious: No
  Sender: TG THERAPEUTICS
  Company Number: US-TG THERAPEUTICS INC.-TGT004300

PATIENT

DRUGS (3)
  1. UBLITUXIMAB [Suspect]
     Active Substance: UBLITUXIMAB
     Indication: Product used for unknown indication
     Route: 042
     Dates: start: 2023
  2. TYSABRI [Concomitant]
     Active Substance: NATALIZUMAB
     Indication: Multiple sclerosis
     Route: 050
     Dates: start: 20220526, end: 20230517
  3. TYSABRI [Concomitant]
     Active Substance: NATALIZUMAB
     Route: 050
     Dates: start: 20240801

REACTIONS (3)
  - Back pain [Unknown]
  - Tremor [Recovered/Resolved]
  - Fatigue [Unknown]
